FAERS Safety Report 21032144 (Version 2)
Quarter: 2022Q4

REPORT INFORMATION
  Report Type: Spontaneous
  Country: DE (occurrence: DE)
  Receive Date: 20220701
  Receipt Date: 20221224
  Transmission Date: 20230113
  Serious: Yes (Hospitalization, Disabling, Other)
  Sender: FDA-Public Use
  Company Number: DE-DCGMA-21194376

PATIENT
  Age: 76 Year
  Sex: Male

DRUGS (11)
  1. GEMCITABINE [Suspect]
     Active Substance: GEMCITABINE
     Indication: Transitional cell carcinoma metastatic
     Dosage: UNIT DOSE : 1000 MG/M , ON DAY 1, 8, 15
     Route: 042
     Dates: end: 20210512
  2. GEMCITABINE [Suspect]
     Active Substance: GEMCITABINE
     Indication: Bladder transitional cell carcinoma
  3. CARBOPLATIN [Suspect]
     Active Substance: CARBOPLATIN
     Indication: Bladder transitional cell carcinoma
     Dosage: AUC2 ON DAY 1, 8, 15
     Route: 042
     Dates: end: 20210602
  4. CARBOPLATIN [Suspect]
     Active Substance: CARBOPLATIN
     Indication: Transitional cell carcinoma metastatic
  5. AMLODIPINE [Concomitant]
     Active Substance: AMLODIPINE BESYLATE
     Indication: Hypertension
     Dosage: UNIT DOSE : 10 MG, FREQUENCY :1 DAY
  6. ATORVASTATIN [Concomitant]
     Active Substance: ATORVASTATIN
     Indication: Hypercholesterolaemia
     Dosage: FREQUENCY TIME : 1 DAY, 80 (UNIT NOT PROVIDED)/DAY
  7. PRAVASTATIN [Concomitant]
     Active Substance: PRAVASTATIN
     Indication: Hypercholesterolaemia
     Dosage: FREQUENCY TIME : 1 DAY, 20 (UNIT NOT PROVIDED)/DAY
  8. METFORMIN [Concomitant]
     Active Substance: METFORMIN HYDROCHLORIDE
     Indication: Diabetes mellitus
     Dosage: FREQUENCY TIME : 1 DAY, 2000 (UNIT NOT PROVIDED)/DAY
  9. CANDESARTAN CILEXETIL\HYDROCHLOROTHIAZIDE [Concomitant]
     Active Substance: CANDESARTAN CILEXETIL\HYDROCHLOROTHIAZIDE
     Indication: Hypertension
     Dosage: CANDESARTAN COMP 16/12.5, 16/15.5 (UNIT NOT PROVIDED)/DAY, FREQUENCY TIME : 1 DAY
  10. METOPROLOL [Concomitant]
     Active Substance: METOPROLOL
     Indication: Hypertension
     Dosage: FREQUENCY TIME ; 1 DAY, 47.5 (UNIT NOT PROVIDED)/DAY
  11. ASPIRIN [Concomitant]
     Active Substance: ASPIRIN
     Indication: Coronary artery disease
     Dosage: ASS 100, UNIT DOSE : 100 MG, FREQUENCY TIME : 1 DAY

REACTIONS (5)
  - Necrosis [Recovered/Resolved with Sequelae]
  - Vasculitis [Recovered/Resolved with Sequelae]
  - Amputation [Unknown]
  - Amputation [Not Recovered/Not Resolved]
  - Peripheral artery occlusion [Not Recovered/Not Resolved]

NARRATIVE: CASE EVENT DATE: 20210510
